FAERS Safety Report 9399045 (Version 1)
Quarter: 2013Q3

REPORT INFORMATION
  Report Type: Report from Study
  Country: CN (occurrence: CN)
  Receive Date: 20130715
  Receipt Date: 20130715
  Transmission Date: 20140515
  Serious: Yes (Other)
  Sender: FDA-Public Use
  Company Number: CN-ROCHE-1248393

PATIENT
  Age: 66 Year
  Sex: Female
  Weight: 58 kg

DRUGS (3)
  1. CELLCEPT [Suspect]
     Indication: RENAL TRANSPLANT
     Route: 048
     Dates: start: 20100428
  2. SANDIMMUN NEORAL [Concomitant]
     Indication: RENAL TRANSPLANT
     Route: 048
     Dates: start: 20100428
  3. METHYLPREDNISOLONE [Concomitant]
     Indication: RENAL TRANSPLANT
     Dosage: 4MG IN THE MORNING, 2MG IN THE EVENING
     Route: 048
     Dates: start: 20100428

REACTIONS (1)
  - Breast cancer [Unknown]
